FAERS Safety Report 6467548-X (Version None)
Quarter: 2009Q4

REPORT INFORMATION
  Report Type: 
  Country: None (occurrence: None)
  Receive Date: 20091202
  Receipt Date: 20091105
  Transmission Date: 20100525
  Serious: No
  Sender: FDA-Public Use
  Company Number: US-BAYER-200916592BCC

PATIENT
  Age: 61 Year
  Sex: Female
  Weight: 84 kg

DRUGS (15)
  1. ALEVE [Suspect]
     Indication: ARTHRALGIA
     Dosage: TOTAL DAILY DOSE: 440 MG  UNIT DOSE: 220 MG
     Route: 048
     Dates: start: 20080101, end: 20090601
  2. ASPIRIN [Concomitant]
     Route: 065
  3. FLUTICASONE PROPIONATE [Concomitant]
     Route: 065
  4. FOLBIC [Concomitant]
     Route: 065
  5. LEVOTHYROXINE SODIUM [Concomitant]
     Route: 065
  6. LEXAPRO [Concomitant]
     Route: 065
  7. GEMFIBROZIL [Concomitant]
     Route: 065
  8. METFORMIN HCL [Concomitant]
     Route: 065
  9. INDAPAMIDE [Concomitant]
     Route: 065
  10. NEXIUM [Concomitant]
     Route: 065
  11. PLAVIX [Concomitant]
     Route: 065
  12. SPIRONOLACTONE [Concomitant]
     Route: 065
  13. TOPIRAMATE [Concomitant]
     Route: 065
  14. MULTI-VITAMIN [Concomitant]
     Route: 065
  15. GLUCOSAMINE/CONDROITIN [Concomitant]
     Route: 065

REACTIONS (1)
  - ARTHRALGIA [None]
